FAERS Safety Report 10204152 (Version 4)
Quarter: 2014Q2

REPORT INFORMATION
  Report Type: Spontaneous
  Country: US (occurrence: US)
  Receive Date: 20140529
  Receipt Date: 20140625
  Transmission Date: 20141212
  Serious: No
  Sender: FDA-Public Use
  Company Number: US-PFIZER INC-2014146453

PATIENT
  Sex: Female

DRUGS (1)
  1. LYRICA [Suspect]
     Dosage: UNK

REACTIONS (7)
  - Gait disturbance [Unknown]
  - Palpitations [Unknown]
  - Spinal pain [Unknown]
  - Arthralgia [Unknown]
  - Back pain [Unknown]
  - Pain in extremity [Unknown]
  - Pain [Unknown]
